FAERS Safety Report 6961062-0 (Version None)
Quarter: 2010Q3

REPORT INFORMATION
  Report Type: 
  Country: None (occurrence: None)
  Receive Date: 20100901
  Receipt Date: 20100819
  Transmission Date: 20110219
  Serious: Yes (Hospitalization)
  Sender: FDA-Public Use
  Company Number: FR-ELI_LILLY_AND_COMPANY-FR201008005296

PATIENT
  Sex: Male

DRUGS (2)
  1. GEMZAR [Suspect]
     Dosage: UNK, UNKNOWN
     Route: 042
     Dates: start: 20100401, end: 20100504
  2. ALIMTA [Suspect]

REACTIONS (2)
  - ALVEOLITIS [None]
  - DRUG TOLERANCE DECREASED [None]
